FAERS Safety Report 7305642-1 (Version None)
Quarter: 2011Q1

REPORT INFORMATION
  Report Type: 
  Country: None (occurrence: None)
  Receive Date: 20110222
  Receipt Date: 20110214
  Transmission Date: 20110831
  Serious: Yes (Hospitalization, Congenital Anomaly)
  Sender: FDA-Public Use
  Company Number: A0681937A

PATIENT
  Sex: Male

DRUGS (7)
  1. PRENATAL VITAMINS [Concomitant]
     Route: 064
  2. AMOXICILLIN [Concomitant]
     Indication: INFLUENZA
     Dosage: 500MG PER DAY
     Route: 064
     Dates: start: 20010101
  3. PAXIL [Suspect]
     Indication: DEPRESSION
     Dosage: 20MG PER DAY
     Route: 064
     Dates: start: 19970101
  4. TUMS [Concomitant]
     Route: 064
  5. ACETAMINOPHEN AND HYDROCODONE BITARTRATE [Concomitant]
     Indication: INFLUENZA
     Route: 064
     Dates: start: 20010101
  6. AMBIEN [Concomitant]
     Dosage: 10MG PER DAY
     Route: 064
     Dates: start: 20001201, end: 20010101
  7. NAPROXEN [Concomitant]
     Indication: INFLUENZA
     Route: 064
     Dates: start: 20010101

REACTIONS (10)
  - CONGENITAL AORTIC VALVE INCOMPETENCE [None]
  - RESPIRATORY DISTRESS [None]
  - ATRIAL SEPTAL DEFECT [None]
  - TACHYPNOEA [None]
  - HEART SOUNDS ABNORMAL [None]
  - VENOUS BRUIT [None]
  - SKIN DISCOLOURATION [None]
  - DRUG EXPOSURE DURING PREGNANCY [None]
  - AORTIC VALVE INCOMPETENCE [None]
  - CARDIAC MURMUR [None]
